FAERS Safety Report 8187079-9 (Version None)
Quarter: 2012Q1

REPORT INFORMATION
  Report Type: 
  Country: None (occurrence: None)
  Receive Date: 20120306
  Receipt Date: 20120227
  Transmission Date: 20120608
  Serious: No
  Sender: FDA-Public Use
  Company Number: US-BAYER-2012-019965

PATIENT
  Sex: Female
  Weight: 70 kg

DRUGS (10)
  1. ALEVE (CAPLET) [Suspect]
     Dosage: UNK UNK, BID
     Route: 048
  2. EFFEXOR [Concomitant]
  3. GABAPENTIN [Concomitant]
  4. HYDROCHLOROTHIAZIDE [Concomitant]
  5. DETROL [Concomitant]
  6. ESTRACE [Concomitant]
  7. LACINAPRO [Concomitant]
  8. ZETIA [Concomitant]
  9. AMBIEN [Concomitant]
  10. LEVOTHYROXINE SODIUM [Concomitant]

REACTIONS (1)
  - NO ADVERSE EVENT [None]
